FAERS Safety Report 4714918-3 (Version None)
Quarter: 2005Q3

REPORT INFORMATION
  Report Type: 
  Country: None (occurrence: None)
  Receive Date: 20050713
  Receipt Date: 20050627
  Transmission Date: 20060218
  Serious: Yes (Hospitalization)
  Sender: FDA-Public Use
  Company Number: A-US2005-10087

PATIENT
  Age: 78 Year
  Sex: Female

DRUGS (7)
  1. TRACLEER [Suspect]
     Indication: PULMONARY HYPERTENSION
     Dosage: 62.5 MG, BID,
     Dates: start: 20050608
  2. PERINDOPRIL (PERINDOPRIL) [Suspect]
     Dosage: 4 MG, QD,
  3. ASPIRIN [Suspect]
     Dosage: 100 MG, QD,
  4. FUROSEMIDE [Concomitant]
  5. SPIRONOLACTONE [Concomitant]
  6. ATORVASTATIN CALCIUM [Concomitant]
  7. METFORMIN HCL [Concomitant]

REACTIONS (1)
  - ANGIONEUROTIC OEDEMA [None]
